FAERS Safety Report 9839293 (Version 2)
Quarter: 2014Q1

REPORT INFORMATION
  Report Type: Spontaneous
  Country: BR (occurrence: BR)
  Receive Date: 20140123
  Receipt Date: 20140219
  Transmission Date: 20141002
  Serious: No
  Sender: FDA-Public Use
  Company Number: PHHY2014BR005984

PATIENT
  Age: 62 Year
  Sex: Female
  Weight: 64 kg

DRUGS (2)
  1. DIOVAN HCT [Suspect]
     Indication: HYPERTENSION
     Dosage: 1 DF (160 MG VALS, 12.5 MG HYDR), QD
     Route: 048
  2. AMLODIPINE [Concomitant]
     Indication: HYPERTENSION
     Dosage: 1 DF (5 MG) A DAY
     Route: 048

REACTIONS (20)
  - Deafness [Recovering/Resolving]
  - Gastritis [Recovering/Resolving]
  - Weight decreased [Not Recovered/Not Resolved]
  - Cerumen impaction [Recovering/Resolving]
  - Dysgeusia [Recovering/Resolving]
  - Tremor [Recovering/Resolving]
  - Dysuria [Recovering/Resolving]
  - Renal pain [Recovered/Resolved]
  - Liver disorder [Recovering/Resolving]
  - Nasal septum deviation [Recovering/Resolving]
  - Osteoarthritis [Not Recovered/Not Resolved]
  - Arrhythmia [Recovering/Resolving]
  - Rhinitis [Recovering/Resolving]
  - Tinnitus [Recovering/Resolving]
  - Depression [Recovering/Resolving]
  - Nausea [Recovering/Resolving]
  - Abdominal pain [Recovering/Resolving]
  - Insomnia [Recovering/Resolving]
  - Dizziness [Recovering/Resolving]
  - Abdominal discomfort [Recovering/Resolving]
